FAERS Safety Report 6399247-7 (Version None)
Quarter: 2009Q4

REPORT INFORMATION
  Report Type: 
  Country: None (occurrence: None)
  Receive Date: 20091014
  Receipt Date: 20091005
  Transmission Date: 20100525
  Serious: Yes (Hospitalization, Other)
  Sender: FDA-Public Use
  Company Number: GB-RANBAXY-2009RR-28480

PATIENT
  Age: 50 Year
  Sex: Male
  Weight: 74 kg

DRUGS (5)
  1. SIMVASTATIN [Suspect]
     Indication: MYOCARDIAL ISCHAEMIA
     Dosage: 80 MG, UNK
     Route: 048
     Dates: start: 20090421
  2. ALLOPURINOL [Concomitant]
  3. ASPIRIN [Concomitant]
  4. GLIMEPIRIDE [Concomitant]
  5. METFORMIN HYDROCHLORIDE [Concomitant]

REACTIONS (4)
  - ABSCESS [None]
  - BACK PAIN [None]
  - RENAL FAILURE ACUTE [None]
  - RHABDOMYOLYSIS [None]
